FAERS Safety Report 15635041 (Version 1)
Quarter: 2018Q4

REPORT INFORMATION
  Report Type: Spontaneous
  Country: US (occurrence: US)
  Receive Date: 20181119
  Receipt Date: 20181119
  Transmission Date: 20190205
  Serious: No
  Sender: FDA-Public Use
  Company Number: US-ASTRAZENECA-2018SF41469

PATIENT
  Sex: Female

DRUGS (4)
  1. SYMBICORT [Suspect]
     Active Substance: BUDESONIDE\FORMOTEROL FUMARATE DIHYDRATE
     Indication: ILL-DEFINED DISORDER
     Dosage: 80/4.5 MCG, A PUFF UNKNOWN
     Route: 055
     Dates: start: 2018
  2. BRONCHAID [Concomitant]
     Dosage: UNKNOWN
     Route: 048
  3. PROAIR HFA [Concomitant]
     Active Substance: ALBUTEROL SULFATE
     Dosage: UNKNOWN
     Route: 065
  4. PRIMATINE [Concomitant]
     Dosage: UNKNOWN
     Route: 048

REACTIONS (7)
  - Product prescribing error [Unknown]
  - Dyspnoea [Unknown]
  - Circumstance or information capable of leading to medication error [Unknown]
  - Intentional product misuse [Unknown]
  - Wheezing [Unknown]
  - Drug effect decreased [Unknown]
  - Wrong technique in product usage process [Unknown]
